FAERS Safety Report 4481057-9 (Version None)
Quarter: 2004Q4

REPORT INFORMATION
  Report Type: 
  Country: None (occurrence: None)
  Receive Date: 20041019
  Receipt Date: 20041011
  Transmission Date: 20050328
  Serious: Yes (Hospitalization)
  Sender: FDA-Public Use
  Company Number: TPA2004A01230

PATIENT
  Age: 63 Year
  Sex: Male
  Weight: 88.4514 kg

DRUGS (7)
  1. ACTOS [Suspect]
     Indication: DIABETES MELLITUS NON-INSULIN-DEPENDENT
     Dosage: 30 MG, 1 IN 1 D, PER ORAL
     Route: 048
     Dates: start: 20040726
  2. HCTZ (HYDROCHLOROTHIAZIDE) (12.5 MILLIGRAM) [Concomitant]
  3. GLUCOVANCE (GLIBOMET) [Concomitant]
  4. LOPID (GEMFIBROZIL) (600 MILLIGRAM) [Concomitant]
  5. POTASSIUM (POTASSIUM) (10 MILLIEQUIVALENTS) [Concomitant]
  6. METFORMIN HCL (METFORMIN HYDROCHLORIDE) (500 MILLIGRAM) [Concomitant]
  7. UNICAP M (UNICAP-M) [Concomitant]

REACTIONS (6)
  - BODY TEMPERATURE FLUCTUATION [None]
  - EATING DISORDER [None]
  - FEELING ABNORMAL [None]
  - LISTLESS [None]
  - LOBAR PNEUMONIA [None]
  - RHINORRHOEA [None]
